FAERS Safety Report 10181482 (Version 1)
Quarter: 2014Q2

REPORT INFORMATION
  Report Type: Spontaneous
  Country: US (occurrence: US)
  Receive Date: 20140519
  Receipt Date: 20140519
  Transmission Date: 20141212
  Serious: Yes (Other)
  Sender: FDA-Public Use
  Company Number: US-GLAXOSMITHKLINE-A1072450A

PATIENT
  Age: 55 Year
  Sex: Female

DRUGS (6)
  1. LAMICTAL [Suspect]
     Indication: BIPOLAR DISORDER
     Dosage: 150MG TWICE PER DAY
     Route: 048
  2. SOMA [Concomitant]
  3. IBUPROFEN [Concomitant]
  4. HYDROCODONE [Concomitant]
  5. RITALIN [Concomitant]
  6. CITALOPRAM HYDROBROMIDE [Concomitant]

REACTIONS (5)
  - Brain injury [Unknown]
  - Attention deficit/hyperactivity disorder [Unknown]
  - Memory impairment [Unknown]
  - Dissociative fugue [Unknown]
  - Disability [Unknown]
